FAERS Safety Report 6287664-5 (Version None)
Quarter: 2009Q3

REPORT INFORMATION
  Report Type: 
  Country: None (occurrence: None)
  Receive Date: 20090727
  Receipt Date: 20090727
  Transmission Date: 20100115
  Serious: Yes (Hospitalization)
  Sender: FDA-Public Use
  Company Number: None

PATIENT
  Sex: Male
  Weight: 71.2147 kg

DRUGS (4)
  1. SORAFENIB [Suspect]
     Indication: BRAIN NEOPLASM
     Dosage: 200 MG BID
     Dates: start: 20080427, end: 20080711
  2. TEMOZOLOMIDE [Suspect]
     Dosage: 75 MG BID
     Dates: start: 20080427, end: 20080610
  3. NEXIUM [Concomitant]
  4. KEPPRA [Concomitant]

REACTIONS (4)
  - CONVULSION [None]
  - DISEASE PROGRESSION [None]
  - HEMIPARESIS [None]
  - TREMOR [None]
